FAERS Safety Report 24949483 (Version 1)
Quarter: 2025Q1

REPORT INFORMATION
  Report Type: Spontaneous
  Country: US (occurrence: US)
  Receive Date: 20250210
  Receipt Date: 20250210
  Transmission Date: 20250409
  Serious: No
  Sender: ALKEM
  Company Number: US-ALKEM LABORATORIES LIMITED-US-ALKEM-2024-25776

PATIENT
  Sex: Male
  Weight: 81.633 kg

DRUGS (2)
  1. FINASTERIDE [Suspect]
     Active Substance: FINASTERIDE
     Indication: Androgenetic alopecia
     Dosage: 1 MILLIGRAM, QD
     Route: 065
     Dates: start: 202409, end: 202410
  2. FINASTERIDE [Suspect]
     Active Substance: FINASTERIDE
     Route: 065
     Dates: start: 2024

REACTIONS (1)
  - Anxiety [Recovered/Resolved]
